FAERS Safety Report 8540529-8 (Version None)
Quarter: 2012Q3

REPORT INFORMATION
  Report Type: 
  Country: None (occurrence: None)
  Receive Date: 20120726
  Receipt Date: 20110729
  Transmission Date: 20120928
  Serious: No
  Sender: FDA-Public Use
  Company Number: US-ASTRAZENECA-2011SE45744

PATIENT
  Sex: Female

DRUGS (7)
  1. LITHIUM CARBONATE [Concomitant]
  2. KLONOPIN [Concomitant]
  3. MEGESTROL ACETATE [Concomitant]
  4. SEROQUEL [Suspect]
     Indication: BIPOLAR DISORDER
     Route: 048
  5. ADDERALL 5 [Concomitant]
  6. XANAX [Concomitant]
  7. ZOLOFT [Concomitant]

REACTIONS (9)
  - DIARRHOEA [None]
  - IMPAIRED DRIVING ABILITY [None]
  - CONFUSIONAL STATE [None]
  - MOOD SWINGS [None]
  - WEIGHT DECREASED [None]
  - AGITATION [None]
  - NAUSEA [None]
  - DECREASED APPETITE [None]
  - DRUG DOSE OMISSION [None]
